FAERS Safety Report 19068504 (Version 6)
Quarter: 2022Q1

REPORT INFORMATION
  Report Type: Spontaneous
  Country: US (occurrence: US)
  Receive Date: 20210329
  Receipt Date: 20220211
  Transmission Date: 20220424
  Serious: Yes (Other)
  Sender: FDA-Public Use
  Company Number: US-PFIZER INC-2021124656

PATIENT
  Age: 77 Year
  Sex: Female
  Weight: 67.2 kg

DRUGS (5)
  1. INSPRA [Suspect]
     Active Substance: EPLERENONE
     Indication: Adrenal disorder
     Dosage: 25 MG, 3X/DAY (QUANTITY FOR 90 DAYS-270, TAKE TWO TABS IN AM =50 MG AND ONE TAB =25 MG IN PM)
     Route: 048
     Dates: start: 2020
  2. INSPRA [Suspect]
     Active Substance: EPLERENONE
     Indication: Hyperaldosteronism
     Dosage: 100 MG, DAILY (1 TABLET IN AM AND 1 TABLET IN PM)
     Route: 048
  3. INSPRA [Suspect]
     Active Substance: EPLERENONE
     Indication: Essential hypertension
     Dosage: 25 MG, 4X/DAY
     Route: 048
  4. INSPRA [Suspect]
     Active Substance: EPLERENONE
     Indication: Hypertension
     Dosage: 25 AND 50; DIRECTIONS OF 2 TABLETS BY MOUTH IN THE MORNING AND 1 TAB IN THE EVENING
     Route: 048
     Dates: start: 20210409
  5. INSPRA [Suspect]
     Active Substance: EPLERENONE
     Dosage: 50 MG, 2X/DAY
     Route: 048
     Dates: start: 20210416

REACTIONS (4)
  - Skin cancer [Unknown]
  - Blood pressure systolic increased [Unknown]
  - Blood pressure increased [Unknown]
  - Stress [Unknown]
